FAERS Safety Report 4680786-1 (Version None)
Quarter: 2005Q2

REPORT INFORMATION
  Report Type: 
  Country: None (occurrence: None)
  Receive Date: 20050601
  Receipt Date: 20050601
  Transmission Date: 20051028
  Serious: Yes (Disabling)
  Sender: FDA-Public Use
  Company Number: None

PATIENT
  Sex: Female
  Weight: 51.2565 kg

DRUGS (2)
  1. PAXIL CR [Suspect]
     Indication: ANXIETY
     Dosage: 25 MG /Q DAY PO
     Route: 048
     Dates: start: 20020915, end: 20050518
  2. PAXIL CR [Suspect]
     Indication: DEPRESSION
     Dosage: 25 MG /Q DAY PO
     Route: 048
     Dates: start: 20020915, end: 20050518

REACTIONS (9)
  - ANGER [None]
  - BALANCE DISORDER [None]
  - CONDUCTION DISORDER [None]
  - DEPRESSION [None]
  - DRUG DOSE OMISSION [None]
  - DRUG WITHDRAWAL SYNDROME [None]
  - IRRITABILITY [None]
  - NERVOUS SYSTEM DISORDER [None]
  - VISION BLURRED [None]
